FAERS Safety Report 23442947 (Version 1)
Quarter: 2024Q1

REPORT INFORMATION
  Report Type: Spontaneous
  Country: US (occurrence: None)
  Receive Date: 20240124
  Receipt Date: 20240124
  Transmission Date: 20240410
  Serious: Yes (Disabling)
  Sender: FDA-Public Use
  Company Number: None

PATIENT
  Age: 14 Year
  Sex: Male
  Weight: 31.5 kg

DRUGS (3)
  1. DOTAREM [Suspect]
     Active Substance: GADOTERATE MEGLUMINE
     Indication: Magnetic resonance imaging
     Route: 042
  2. HUMIRA [Concomitant]
     Active Substance: ADALIMUMAB
  3. HUMATROPE [Concomitant]
     Active Substance: SOMATROPIN

REACTIONS (5)
  - Sacroiliitis [None]
  - Muscle spasms [None]
  - Gait disturbance [None]
  - Arthropathy [None]
  - Contrast media reaction [None]

NARRATIVE: CASE EVENT DATE: 20201007
